FAERS Safety Report 7606089-0 (Version None)
Quarter: 2011Q3

REPORT INFORMATION
  Report Type: 
  Country: None (occurrence: None)
  Receive Date: 20110713
  Receipt Date: 20110702
  Transmission Date: 20111222
  Serious: Yes (Hospitalization)
  Sender: FDA-Public Use
  Company Number: CZ-ELI_LILLY_AND_COMPANY-CZ201102005526

PATIENT
  Age: 61 Year
  Sex: Male

DRUGS (7)
  1. ACE INHIBITORS [Concomitant]
  2. DIURETICS [Concomitant]
  3. BYETTA [Suspect]
     Dosage: 10 UG, 2/D
     Route: 058
     Dates: start: 20100501, end: 20101006
  4. METFORMIN HCL [Concomitant]
     Dosage: UNK, UNK
     Route: 048
  5. GLIMEPIRIDE [Concomitant]
  6. AMLODIPINE [Concomitant]
  7. BYETTA [Suspect]
     Indication: TYPE 2 DIABETES MELLITUS
     Dosage: 5 UG, 2/D
     Route: 058
     Dates: start: 20100409

REACTIONS (8)
  - RENAL FAILURE [None]
  - HYPOPHAGIA [None]
  - BLOOD PRESSURE DECREASED [None]
  - DECREASED APPETITE [None]
  - GASTRITIS [None]
  - NEPHROLITHIASIS [None]
  - WEIGHT DECREASED [None]
  - DEHYDRATION [None]
